FAERS Safety Report 13370632 (Version 5)
Quarter: 2017Q3

REPORT INFORMATION
  Report Type: Report from Study
  Country: CA (occurrence: CA)
  Receive Date: 20170324
  Receipt Date: 20170707
  Transmission Date: 20171127
  Serious: Yes (Other)
  Sender: FDA-Public Use
  Company Number: CA-SHIRE-CA201706577

PATIENT
  Age: 45 Year
  Sex: Female

DRUGS (5)
  1. BERINERT [Concomitant]
     Active Substance: HUMAN C1-ESTERASE INHIBITOR
     Indication: PRODUCT USED FOR UNKNOWN INDICATION
     Dosage: 1500 IU, UNKNOWN
     Route: 065
     Dates: start: 20170508
  2. PREMARIN [Concomitant]
     Active Substance: ESTROGENS, CONJUGATED
     Indication: PRODUCT USED FOR UNKNOWN INDICATION
     Dosage: UNK, UNKNOWN
     Route: 065
  3. CINRYZE [Suspect]
     Active Substance: HUMAN C1-ESTERASE INHIBITOR
     Indication: HEREDITARY ANGIOEDEMA
     Dosage: 1500 IU, OTHER (EVERY 3 DAYS)
     Route: 042
     Dates: start: 20161003
  4. CINRYZE [Suspect]
     Active Substance: HUMAN C1-ESTERASE INHIBITOR
     Indication: PROPHYLAXIS
  5. TRANEXAMIC ACID. [Concomitant]
     Active Substance: TRANEXAMIC ACID
     Indication: PRODUCT USED FOR UNKNOWN INDICATION
     Dosage: UNK, UNKNOWN
     Route: 065

REACTIONS (25)
  - Hepatic enzyme increased [Unknown]
  - Dizziness [Unknown]
  - Hot flush [Not Recovered/Not Resolved]
  - Contusion [Unknown]
  - Abdominal pain upper [Unknown]
  - Rash [Not Recovered/Not Resolved]
  - Product quality issue [Unknown]
  - Pharyngeal oedema [Unknown]
  - Hereditary angioedema [Unknown]
  - Blood pressure increased [Unknown]
  - Malaise [Unknown]
  - Chest discomfort [Unknown]
  - Pain in extremity [Unknown]
  - Musculoskeletal pain [Unknown]
  - Poor venous access [Unknown]
  - Insomnia [Unknown]
  - Nasopharyngitis [Unknown]
  - Rales [Unknown]
  - Dysphonia [Unknown]
  - Arthralgia [Unknown]
  - Cough [Unknown]
  - Infusion site pain [Unknown]
  - Wheezing [Unknown]
  - Prescribed overdose [Not Recovered/Not Resolved]
  - Nausea [Unknown]

NARRATIVE: CASE EVENT DATE: 20161003
